FAERS Safety Report 7422565-8 (Version None)
Quarter: 2011Q2

REPORT INFORMATION
  Report Type: 
  Country: None (occurrence: None)
  Receive Date: 20110419
  Receipt Date: 20110408
  Transmission Date: 20111010
  Serious: Yes (Death, Hospitalization, Other)
  Sender: FDA-Public Use
  Company Number: CA-CELGENEUS-028-21880-10123353

PATIENT
  Sex: Female
  Weight: 57.5 kg

DRUGS (25)
  1. POTASSIUM CHLORIDE [Concomitant]
     Dosage: 40 MILLIGRAM
     Route: 051
     Dates: start: 20101231
  2. HYDROCORTISONE SODIUM [Concomitant]
     Dosage: 50 MILLIGRAM
     Route: 051
     Dates: start: 20101231
  3. PANTOPRAZOLE SODIUM [Concomitant]
     Dosage: 40 MILLIGRAM
     Route: 051
     Dates: start: 20110103
  4. DOCUSATE [Concomitant]
     Route: 065
  5. SODIUM BICARBONATE [Concomitant]
     Dosage: 50 MILLIGRAM
     Route: 051
     Dates: start: 20101231
  6. QUETIAPINE [Concomitant]
     Route: 065
  7. FENTANYL [Concomitant]
     Route: 065
  8. CYCLOPHOSPHAMIDE [Suspect]
     Indication: MULTIPLE MYELOMA
     Dosage: 100 MILLIGRAM/SQ. METER
     Route: 065
     Dates: start: 20071120, end: 20101231
  9. PREDNISONE [Suspect]
     Indication: MULTIPLE MYELOMA
     Dosage: 20 MILLIGRAM
     Route: 065
     Dates: start: 20071120, end: 20101231
  10. FAMOTIDINE [Concomitant]
     Indication: PROPHYLAXIS
  11. REVLIMID [Suspect]
     Indication: MULTIPLE MYELOMA
     Dosage: 15 MILLIGRAM
     Route: 048
     Dates: start: 20071120, end: 20110101
  12. MAGNESIUM SULFATE [Concomitant]
     Dosage: 2 MILLIGRAM
     Route: 051
     Dates: start: 20101231
  13. FAMOTIDINE [Concomitant]
     Dosage: 20 MILLIGRAM
     Route: 051
     Dates: start: 20101231, end: 20110103
  14. VERSED [Concomitant]
     Route: 065
  15. PROPOFOL [Concomitant]
     Route: 065
  16. HEPARIN [Concomitant]
     Indication: PROPHYLAXIS
     Dosage: 5000 UNITS
     Route: 058
     Dates: start: 20110101
  17. MUCOSITIS MOUTHWASH [Concomitant]
     Route: 065
  18. NOREPINEPHRINE BITARTRATE [Concomitant]
     Dosage: 16 MILLIGRAM
     Route: 051
     Dates: start: 20101231
  19. SODIUM PHOSPHATE [Concomitant]
     Dosage: 15 MILLIGRAM
     Route: 051
     Dates: start: 20101231
  20. PANTOPRAZOLE SODIUM [Concomitant]
     Indication: PROPHYLAXIS
  21. ACETAMINOPHEN [Concomitant]
     Route: 065
  22. POTASSIUM [Concomitant]
     Dosage: 15 MILLIGRAM
     Route: 051
     Dates: start: 20101231
  23. CALCIUM GLUCONATE [Concomitant]
     Dosage: 2 GRAM
     Route: 051
     Dates: start: 20101231
  24. CLONAZEPAM [Concomitant]
     Route: 065
  25. ROCURONIUM [Concomitant]
     Route: 065

REACTIONS (3)
  - ATRIAL FIBRILLATION [None]
  - PNEUMONIA STREPTOCOCCAL [None]
  - RENAL FAILURE ACUTE [None]
